FAERS Safety Report 5170492-1 (Version None)
Quarter: 2006Q4

REPORT INFORMATION
  Report Type: 
  Country: None (occurrence: None)
  Receive Date: 20061204
  Receipt Date: 20061122
  Transmission Date: 20070319
  Serious: Yes (Other)
  Sender: FDA-Public Use
  Company Number: 2006143674

PATIENT
  Age: 11 Year
  Sex: Female

DRUGS (1)
  1. SOLU-MEDROL [Suspect]
     Indication: ASTHMA
     Dosage: INTRAVENOUS
     Route: 042
     Dates: start: 20060901

REACTIONS (2)
  - ASTHMA [None]
  - CONDITION AGGRAVATED [None]
